FAERS Safety Report 11029445 (Version 1)
Quarter: 2015Q2

REPORT INFORMATION
  Report Type: Spontaneous
  Country: CH (occurrence: CH)
  Receive Date: 20150415
  Receipt Date: 20150415
  Transmission Date: 20150821
  Serious: Yes (Hospitalization)
  Sender: FDA-Public Use
  Company Number: CH-ROCHE-1561694

PATIENT
  Age: 63 Year
  Sex: Male
  Weight: 145 kg

DRUGS (13)
  1. APROVEL [Concomitant]
     Active Substance: IRBESARTAN
     Route: 048
     Dates: start: 20150108
  2. BULBOID [Concomitant]
     Route: 065
     Dates: start: 20150119
  3. VALIUM [Suspect]
     Active Substance: DIAZEPAM
     Indication: AGITATION
     Route: 030
     Dates: start: 20141230, end: 20150213
  4. AKINETON [Suspect]
     Active Substance: BIPERIDEN HYDROCHLORIDE
     Indication: EXTRAPYRAMIDAL DISORDER
     Route: 048
     Dates: start: 20150206, end: 20150213
  5. HALDOL [Suspect]
     Active Substance: HALOPERIDOL
     Indication: PSYCHOTIC DISORDER
     Route: 048
     Dates: start: 20141230, end: 20150213
  6. PRONTOLAX [Concomitant]
     Active Substance: BISACODYL
     Route: 065
  7. ATROPINE SULPHATE [Suspect]
     Active Substance: ATROPINE SULFATE
     Indication: PRODUCT USED FOR UNKNOWN INDICATION
     Dosage: REPORTED AS BELLAFIT N.
     Route: 048
     Dates: start: 20150206, end: 20150213
  8. VALVERDE SIROP [Concomitant]
     Route: 065
     Dates: start: 20150119
  9. LITHIOFOR [Suspect]
     Active Substance: LITHIUM SULFATE
     Indication: PRODUCT USED FOR UNKNOWN INDICATION
     Route: 048
     Dates: start: 20150130, end: 20150213
  10. CLOPINE [Suspect]
     Active Substance: CLOZAPINE
     Indication: PSYCHOTIC DISORDER
     Route: 048
     Dates: start: 2005, end: 20150209
  11. ATORVASTATIN [Concomitant]
     Active Substance: ATORVASTATIN
     Route: 048
     Dates: start: 20150108
  12. PRIMPERAN [Concomitant]
     Active Substance: METOCLOPRAMIDE HYDROCHLORIDE
     Route: 048
     Dates: start: 20150206, end: 201502
  13. LAXOBERON [Concomitant]
     Active Substance: SODIUM PICOSULFATE
     Route: 065
     Dates: start: 20150119

REACTIONS (22)
  - Refusal of treatment by patient [None]
  - Malnutrition [None]
  - Altered state of consciousness [Recovered/Resolved]
  - Extrapyramidal disorder [None]
  - Delirium [None]
  - Inflammation [None]
  - Constipation [Recovered/Resolved]
  - Acute kidney injury [Recovered/Resolved]
  - Medication error [Unknown]
  - Dehydration [Recovered/Resolved]
  - Hypernatraemia [Recovered/Resolved]
  - Pneumonia aspiration [Recovered/Resolved]
  - Overdose [Unknown]
  - Mobility decreased [None]
  - Vomiting [Recovered/Resolved]
  - Psychiatric decompensation [None]
  - Exercise lack of [None]
  - Acute kidney injury [None]
  - Antipsychotic drug level below therapeutic [None]
  - Ileus paralytic [Recovered/Resolved]
  - Antipsychotic drug level decreased [None]
  - Fluid intake reduced [None]

NARRATIVE: CASE EVENT DATE: 20150122
